FAERS Safety Report 8296670-0 (Version None)
Quarter: 2012Q2

REPORT INFORMATION
  Report Type: 
  Country: None (occurrence: None)
  Receive Date: 20120418
  Receipt Date: 20120418
  Transmission Date: 20120825
  Serious: Yes (Other)
  Sender: FDA-Public Use
  Company Number: None

PATIENT
  Age: 51 Year
  Sex: Male
  Weight: 114.3 kg

DRUGS (2)
  1. METRONIDAZOLE [Suspect]
     Indication: DIVERTICULITIS
     Route: 048
     Dates: start: 20120322, end: 20120323
  2. CIPROFLOXACIN HCL [Concomitant]
     Route: 048

REACTIONS (16)
  - MENTAL DISORDER [None]
  - CONFUSIONAL STATE [None]
  - SUICIDAL IDEATION [None]
  - NAUSEA [None]
  - PANIC ATTACK [None]
  - CHEST PAIN [None]
  - HALLUCINATION [None]
  - CHILLS [None]
  - FEELING ABNORMAL [None]
  - DIZZINESS [None]
  - MIDDLE INSOMNIA [None]
  - HYPOAESTHESIA [None]
  - ANXIETY [None]
  - DEPRESSION [None]
  - ACTIVITIES OF DAILY LIVING IMPAIRED [None]
  - DYSPNOEA [None]
